FAERS Safety Report 25929068 (Version 1)
Quarter: 2025Q4

REPORT INFORMATION
  Report Type: Spontaneous
  Country: US (occurrence: US)
  Receive Date: 20251016
  Receipt Date: 20251016
  Transmission Date: 20260117
  Serious: No
  Sender: ABBVIE
  Company Number: US-ABBVIE-6502559

PATIENT

DRUGS (1)
  1. UBRELVY [Suspect]
     Active Substance: UBROGEPANT
     Indication: Migraine
     Dosage: TAKING UBRELVY FOR A YEAR
     Route: 048
     Dates: start: 2024

REACTIONS (2)
  - Hepatic enzyme increased [Unknown]
  - Raynaud^s phenomenon [Unknown]
